FAERS Safety Report 13394975 (Version 2)
Quarter: 2017Q3

REPORT INFORMATION
  Report Type: Report from Study
  Country: US (occurrence: US)
  Receive Date: 20170403
  Receipt Date: 20170830
  Transmission Date: 20171127
  Serious: Yes (Other)
  Sender: FDA-Public Use
  Company Number: US-AMGEN-USASL2017048017

PATIENT
  Age: 71 Year
  Sex: Male

DRUGS (5)
  1. ENBREL [Suspect]
     Active Substance: ETANERCEPT
     Indication: RHEUMATOID ARTHRITIS
     Dosage: 50 MG, QWK
     Route: 065
     Dates: start: 20161101
  2. METHOTREXATE. [Concomitant]
     Active Substance: METHOTREXATE
     Dosage: UNK
  3. CARBIDOPA-LEVODOPA-B [Suspect]
     Active Substance: CARBIDOPA\LEVODOPA
     Dosage: 200 MG, UNK
     Route: 065
     Dates: start: 2017, end: 2017
  4. ENBREL [Suspect]
     Active Substance: ETANERCEPT
     Dosage: 50 MG, QWK
     Route: 065
  5. CARBIDOPA-LEVODOPA-B [Suspect]
     Active Substance: CARBIDOPA\LEVODOPA
     Indication: PARKINSON^S DISEASE
     Dosage: 100 MG, QD
     Route: 065
     Dates: start: 2017, end: 2017

REACTIONS (7)
  - Arthralgia [Recovered/Resolved]
  - Parkinson^s disease [Unknown]
  - Chills [Unknown]
  - Syncope [Unknown]
  - Pyrexia [Unknown]
  - Dizziness [Unknown]
  - Fatigue [Unknown]

NARRATIVE: CASE EVENT DATE: 2017
